FAERS Safety Report 10713675 (Version 2)
Quarter: 2015Q1

REPORT INFORMATION
  Report Type: Spontaneous
  Country: AT (occurrence: AT)
  Receive Date: 20150115
  Receipt Date: 20150319
  Transmission Date: 20150721
  Serious: Yes (Hospitalization, Other)
  Sender: FDA-Public Use
  Company Number: AT-BAYER-2015-005638

PATIENT
  Age: 50 Year
  Sex: Female
  Weight: 85 kg

DRUGS (1)
  1. MIRENA [Suspect]
     Active Substance: LEVONORGESTREL
     Dosage: 20 MCG/24HR, CONT
     Route: 015
     Dates: start: 20121203

REACTIONS (3)
  - Deep vein thrombosis [None]
  - Pulmonary embolism [Recovered/Resolved]
  - Pain in extremity [None]

NARRATIVE: CASE EVENT DATE: 20141226
